FAERS Safety Report 10220057 (Version 1)
Quarter: 2014Q2

REPORT INFORMATION
  Report Type: Spontaneous
  Country: US (occurrence: US)
  Receive Date: 20140605
  Receipt Date: 20140605
  Transmission Date: 20141212
  Serious: No
  Sender: FDA-Public Use
  Company Number: US-009507513-1405USA015028

PATIENT
  Age: 69 Year
  Sex: Female

DRUGS (4)
  1. PRINIVIL [Suspect]
     Indication: GLOMERULONEPHRITIS MEMBRANOUS
     Dosage: 40 MG, QD
     Route: 048
  2. CYCLOSPORINE [Concomitant]
     Indication: GLOMERULONEPHRITIS MEMBRANOUS
     Dosage: UNK
  3. MYCOPHENOLATE MOFETIL [Concomitant]
     Indication: GLOMERULONEPHRITIS MEMBRANOUS
     Dosage: UNK UNK, QD
  4. CYCLOPHOSPHAMIDE [Concomitant]
     Indication: GLOMERULONEPHRITIS MEMBRANOUS
     Dosage: 6-MONTH COURSE RECOMMENDED
     Route: 048

REACTIONS (1)
  - Anaemia [Recovered/Resolved]
